FAERS Safety Report 8360525-3 (Version None)
Quarter: 2012Q2

REPORT INFORMATION
  Report Type: 
  Country: None (occurrence: None)
  Receive Date: 20120515
  Receipt Date: 20120504
  Transmission Date: 20120825
  Serious: Yes (Other)
  Sender: FDA-Public Use
  Company Number: US-NOVOPROD-347221

PATIENT
  Age: 67 Year
  Sex: Male
  Weight: 118.37 kg

DRUGS (3)
  1. VICTOZA [Suspect]
     Dosage: 1.2 MG, QD
     Route: 058
     Dates: end: 20120118
  2. LANTUS [Concomitant]
     Indication: TYPE 2 DIABETES MELLITUS
     Dosage: UNKNOWN
     Route: 058
  3. VICTOZA [Suspect]
     Indication: TYPE 2 DIABETES MELLITUS
     Dosage: 0.6 MG, QD
     Route: 058
     Dates: start: 20110927

REACTIONS (2)
  - CHOLECYSTECTOMY [None]
  - GASTROINTESTINAL PAIN [None]
